FAERS Safety Report 12656146 (Version 1)
Quarter: 2016Q3

REPORT INFORMATION
  Report Type: Spontaneous
  Country: US (occurrence: US)
  Receive Date: 20160816
  Receipt Date: 20160816
  Transmission Date: 20161109
  Serious: No
  Sender: FDA-Public Use
  Company Number: ALCN2016US005706

PATIENT
  Age: 92 Year
  Sex: Female

DRUGS (1)
  1. GENTEAL MILD TO MODERATE [Suspect]
     Active Substance: HYPROMELLOSE 2910 (4000 MPA.S)
     Indication: DRY EYE
     Dosage: UNK GTT, PRN
     Route: 047
     Dates: start: 2016

REACTIONS (2)
  - Mouth haemorrhage [Unknown]
  - Overdose [Unknown]

NARRATIVE: CASE EVENT DATE: 20160815
